FAERS Safety Report 8852548 (Version 2)
Quarter: 2012Q4

REPORT INFORMATION
  Report Type: 
  Country: AU (occurrence: AU)
  Receive Date: 20121022
  Receipt Date: 20121129
  Transmission Date: 20130627
  Serious: Yes (Other)
  Sender: FDA-Public Use
  Company Number: PHHY2012AU093279

PATIENT
  Age: 76 Year
  Sex: Female

DRUGS (3)
  1. SANDOSTATIN LAR [Suspect]
     Indication: CARCINOID SYNDROME
     Dosage: 20 mg, UNK
     Route: 030
     Dates: start: 20120818, end: 20121120
  2. WARFARIN [Concomitant]
     Indication: ATRIAL FIBRILLATION
     Dosage: 3 mg, for 3 days
     Route: 048
  3. WARFARIN [Concomitant]
     Dosage: 4 mg, UNK
     Route: 048

REACTIONS (1)
  - Fall [Recovered/Resolved]
